FAERS Safety Report 5474024-X (Version None)
Quarter: 2007Q4

REPORT INFORMATION
  Report Type: 
  Country: None (occurrence: None)
  Receive Date: 20071002
  Receipt Date: 20070921
  Transmission Date: 20080405
  Serious: Yes (Other)
  Sender: FDA-Public Use
  Company Number: PHNU2007DE03033

PATIENT
  Age: 81 Year
  Sex: Female
  Weight: 65 kg

DRUGS (4)
  1. FEMARA [Suspect]
     Indication: BREAST CANCER
     Dosage: UNK, UNK
     Route: 048
     Dates: start: 20070710
  2. ALENDRONIC ACID [Concomitant]
     Dosage: 70 MG, QW
     Route: 065
     Dates: start: 20070710
  3. VITAMIN D [Concomitant]
     Dosage: 500 UNK, QD
     Route: 065
     Dates: start: 20070710
  4. CALCIUM [Concomitant]
     Dosage: 500 MG, UNK
     Route: 065
     Dates: start: 20070710

REACTIONS (4)
  - MALIGNANT NEOPLASM PROGRESSION [None]
  - METASTASES TO LIVER [None]
  - METASTASES TO LUNG [None]
  - ULTRASOUND SCAN [None]
